FAERS Safety Report 23726769 (Version 2)
Quarter: 2024Q2

REPORT INFORMATION
  Report Type: Spontaneous
  Country: US (occurrence: US)
  Receive Date: 20240410
  Receipt Date: 20240417
  Transmission Date: 20240715
  Serious: Yes (Other)
  Sender: FDA-Public Use
  Company Number: US-SUN PHARMACEUTICAL INDUSTRIES LTD-2024R1-440363

PATIENT
  Age: 38 Year
  Sex: Male

DRUGS (2)
  1. IBUPROFEN [Suspect]
     Active Substance: IBUPROFEN
     Indication: Paraplegia
     Dosage: 800 MILLIGRAM, EVERY 6-8 HOURS
     Route: 065
  2. OXYCODONE [Concomitant]
     Active Substance: OXYCODONE\OXYCODONE HYDROCHLORIDE
     Indication: Paraplegia
     Dosage: UNK
     Route: 065

REACTIONS (2)
  - Renal tubular acidosis [Recovered/Resolved]
  - Hypokalaemia [Unknown]
